FAERS Safety Report 5623789-2 (Version None)
Quarter: 2008Q1

REPORT INFORMATION
  Report Type: 
  Country: None (occurrence: None)
  Receive Date: 20080207
  Receipt Date: 20080125
  Transmission Date: 20080703
  Serious: Yes (Other)
  Sender: FDA-Public Use
  Company Number: 2007BI007324

PATIENT
  Age: 29 Year
  Sex: Female

DRUGS (10)
  1. NATALIZUMAB [Suspect]
     Indication: MULTIPLE SCLEROSIS
     Dosage: 300 MG; QM; IV
     Route: 042
     Dates: start: 20061107
  2. NEXIUM [Concomitant]
  3. FOSAMAX [Concomitant]
  4. NEURONTIN [Concomitant]
  5. VESICARE [Concomitant]
  6. IBUPROFEN [Concomitant]
  7. RESTORIL [Concomitant]
  8. MIDODRINE [Concomitant]
  9. BACLOFEN [Concomitant]
  10. ORTHO EVRA [Concomitant]

REACTIONS (3)
  - ABORTION SPONTANEOUS [None]
  - DRUG EXPOSURE DURING PREGNANCY [None]
  - MEMORY IMPAIRMENT [None]
